FAERS Safety Report 8041681-3 (Version None)
Quarter: 2012Q1

REPORT INFORMATION
  Report Type: 
  Country: None (occurrence: None)
  Receive Date: 20120112
  Receipt Date: 20120104
  Transmission Date: 20120608
  Serious: Yes (Other)
  Sender: FDA-Public Use
  Company Number: US-ELI_LILLY_AND_COMPANY-US201201001428

PATIENT
  Age: 41 Year
  Sex: Female

DRUGS (1)
  1. CYMBALTA [Suspect]
     Dosage: 30 MG, QD

REACTIONS (7)
  - DIPLOPIA [None]
  - TREMOR [None]
  - INSOMNIA [None]
  - NERVOUSNESS [None]
  - OFF LABEL USE [None]
  - MULTIPLE SCLEROSIS [None]
  - VISION BLURRED [None]
